FAERS Safety Report 19385812 (Version 1)
Quarter: 2021Q2

REPORT INFORMATION
  Report Type: Spontaneous
  Country: FR (occurrence: FR)
  Receive Date: 20210608
  Receipt Date: 20210608
  Transmission Date: 20210717
  Serious: Yes (Hospitalization, Other)
  Sender: FDA-Public Use
  Company Number: FR-VISTAPHARM, INC.-VER202106-001390

PATIENT
  Age: 34 Year
  Sex: Male

DRUGS (9)
  1. DIPHENIDINE [Suspect]
     Active Substance: DIPHENIDINE
     Indication: PRODUCT USED FOR UNKNOWN INDICATION
     Dosage: UNKNOWN
  2. ZOLPIDEM [Concomitant]
     Active Substance: ZOLPIDEM TARTRATE
     Indication: MENTAL DISORDER
     Dosage: UNKNOWN
  3. ALPRAZOLAM. [Concomitant]
     Active Substance: ALPRAZOLAM
     Indication: MENTAL DISORDER
     Dosage: UNKNOWN
  4. CLOBAZAM. [Suspect]
     Active Substance: CLOBAZAM
     Indication: MENTAL DISORDER
     Dosage: UNKNOWN
  5. N,N?DIALLYL?5?METHOXYTRYPTAMINE [Suspect]
     Active Substance: N,N-DIALLYL-5-METHOXYTRYPTAMINE
     Indication: PRODUCT USED FOR UNKNOWN INDICATION
     Dosage: UNKNOWN
  6. PAROXETINE. [Concomitant]
     Active Substance: PAROXETINE
     Indication: MENTAL DISORDER
     Dosage: UNKNOWN
  7. TRAMADOL. [Concomitant]
     Active Substance: TRAMADOL
     Indication: PRODUCT USED FOR UNKNOWN INDICATION
     Dosage: UNKNOWN
  8. BUPRENORPHINE. [Concomitant]
     Active Substance: BUPRENORPHINE
     Indication: DRUG WITHDRAWAL SYNDROME
     Dosage: 6 MG/DAY
  9. ZOPICLONE [Concomitant]
     Active Substance: ZOPICLONE
     Indication: MENTAL DISORDER
     Dosage: UNKNOWN

REACTIONS (5)
  - Toxicity to various agents [Unknown]
  - Loss of consciousness [Unknown]
  - Miosis [Unknown]
  - Nystagmus [Unknown]
  - Extrapyramidal disorder [Unknown]
